FAERS Safety Report 12904183 (Version 1)
Quarter: 2016Q4

REPORT INFORMATION
  Report Type: Spontaneous
  Country: DE (occurrence: DE)
  Receive Date: 20161102
  Receipt Date: 20161102
  Transmission Date: 20170207
  Serious: Yes (Death)
  Sender: FDA-Public Use
  Company Number: DE-JNJFOC-20160606239

PATIENT
  Age: 86 Year
  Sex: Female

DRUGS (1)
  1. HALDOL DECANOATE [Suspect]
     Active Substance: HALOPERIDOL DECANOATE
     Indication: VOMITING
     Route: 058
     Dates: start: 20160528, end: 20160530

REACTIONS (3)
  - Drug dispensing error [Unknown]
  - Tachycardia [Fatal]
  - Accidental overdose [Fatal]

NARRATIVE: CASE EVENT DATE: 20160528
